FAERS Safety Report 7815011-3 (Version None)
Quarter: 2011Q4

REPORT INFORMATION
  Report Type: 
  Country: None (occurrence: None)
  Receive Date: 20111014
  Receipt Date: 20111003
  Transmission Date: 20120403
  Serious: Yes (Other)
  Sender: FDA-Public Use
  Company Number: PL-GLAXOSMITHKLINE-B0753656A

PATIENT
  Sex: Female

DRUGS (1)
  1. RANITIDINE [Suspect]
     Indication: PRODUCT USED FOR UNKNOWN INDICATION
     Route: 065

REACTIONS (5)
  - DIZZINESS [None]
  - DISORIENTATION [None]
  - VICTIM OF SEXUAL ABUSE [None]
  - MALAISE [None]
  - FEELING ABNORMAL [None]
